FAERS Safety Report 8780439 (Version 1)
Quarter: 2012Q4

REPORT INFORMATION
  Report Type: Spontaneous
  Country: US (occurrence: None)
  Receive Date: 20120905
  Receipt Date: 20120905
  Transmission Date: 20130627
  Serious: Yes (Other)
  Sender: FDA-Public Use
  Company Number: None

PATIENT
  Age: 69 Year
  Sex: Male
  Weight: 104.33 kg

DRUGS (2)
  1. LISINOPRIL [Suspect]
     Indication: HYPERTENSION
     Dosage: 1 tablet once daily po 5-7 years
     Route: 048
  2. LOVASTATIN [Concomitant]

REACTIONS (12)
  - Tremor [None]
  - Arthralgia [None]
  - Cough [None]
  - Dizziness [None]
  - Neuralgia [None]
  - Myocardial infarction [None]
  - Weight increased [None]
  - Staphylococcal infection [None]
  - Urine odour abnormal [None]
  - Asthenia [None]
  - Visual field defect [None]
  - Blood pressure decreased [None]
